FAERS Safety Report 5994914-9 (Version None)
Quarter: 2008Q4

REPORT INFORMATION
  Report Type: 
  Country: None (occurrence: None)
  Receive Date: 20081212
  Receipt Date: 20080917
  Transmission Date: 20090506
  Serious: Yes (Other)
  Sender: FDA-Public Use
  Company Number: US-ABBOTT-08P-163-0476958-00

PATIENT
  Sex: Female
  Weight: 61.29 kg

DRUGS (20)
  1. HUMIRA [Suspect]
     Indication: CROHN'S DISEASE
     Route: 058
     Dates: start: 20080701, end: 20080814
  2. HUMIRA [Suspect]
     Indication: RHEUMATOID ARTHRITIS
  3. HUMIRA [Suspect]
     Indication: SPONDYLOARTHROPATHY
  4. EPINEPHRINE [Concomitant]
     Indication: ANAPHYLACTIC REACTION
     Route: 050
     Dates: start: 20040101
  5. ACETYLSALICYLIC ACID SRT [Concomitant]
     Indication: INFLAMMATION
     Route: 048
     Dates: start: 20040101
  6. RETINOL [Concomitant]
     Indication: MALABSORPTION
     Route: 048
     Dates: start: 20040101
  7. ERGOCALCIFEROL [Concomitant]
     Indication: VITAMIN D DECREASED
     Route: 048
     Dates: start: 20040101
  8. ERGOCALCIFEROL [Concomitant]
     Indication: CROHN'S DISEASE
  9. CALCIUM CARBONATE [Concomitant]
     Indication: MINERAL SUPPLEMENTATION
     Route: 048
     Dates: start: 20040101
  10. SPIRONOLACTONE [Concomitant]
     Indication: ACNE CYSTIC
     Route: 048
     Dates: start: 20010101
  11. SPIRONOLACTONE [Concomitant]
     Indication: DIURETIC THERAPY
  12. PREDNISONE TAB [Concomitant]
     Indication: RHEUMATOID ARTHRITIS
     Dosage: 10-20 MG QD
     Route: 048
     Dates: start: 19990101
  13. DIAZEPAM [Concomitant]
     Indication: MUSCLE SPASMS
     Route: 048
     Dates: start: 20000101
  14. ESTRADIOL [Concomitant]
     Indication: MENOPAUSE
     Route: 048
     Dates: start: 20040101
  15. RANITIDINE [Concomitant]
     Indication: ANTIALLERGIC THERAPY
     Route: 048
  16. IMURAN (GENERIC) [Concomitant]
     Indication: CROHN'S DISEASE
     Route: 048
     Dates: start: 20080701
  17. IMURAN (GENERIC) [Concomitant]
     Indication: SPONDYLITIS
  18. HYDROMORPHONE HCL [Concomitant]
     Indication: PAIN
     Route: 048
  19. BENADRYL [Concomitant]
     Indication: ANGIOEDEMA
     Dosage: (1-2 CAPS) Q 4 HRS PRN
     Route: 048
  20. NASONEX SPRAY [Concomitant]
     Indication: SINUS DISORDER
     Dosage: 2 SQUIRTS EACH NOSTRIL QD
     Route: 045
     Dates: start: 20050101

REACTIONS (8)
  - ANAPHYLACTIC REACTION [None]
  - DYSGEUSIA [None]
  - INCREASED TENDENCY TO BRUISE [None]
  - INJECTION SITE REACTION [None]
  - LOCAL SWELLING [None]
  - OEDEMA PERIPHERAL [None]
  - SWELLING FACE [None]
  - UPPER RESPIRATORY TRACT INFECTION [None]
